FAERS Safety Report 15831400 (Version 1)
Quarter: 2019Q1

REPORT INFORMATION
  Report Type: Spontaneous
  Country: US (occurrence: US)
  Receive Date: 20190116
  Receipt Date: 20190116
  Transmission Date: 20190417
  Serious: Yes (Death)
  Sender: FDA-Public Use
  Company Number: US-INSYS THERAPEUTICS, INC-INS201901-000057

PATIENT
  Age: 22 Year
  Sex: Female

DRUGS (8)
  1. FENTANYL. [Suspect]
     Active Substance: FENTANYL
     Dates: start: 2017
  2. FURANYL FENTANYL [Suspect]
     Active Substance: FURANYLFENTANYL
     Route: 051
     Dates: start: 2017
  3. OXYCODONE [Suspect]
     Active Substance: OXYCODONE
     Dates: start: 2017
  4. HEROIN [Suspect]
     Active Substance: DIAMORPHINE
     Route: 051
     Dates: start: 2017
  5. FENTANYL. [Suspect]
     Active Substance: FENTANYL
     Indication: PRODUCT USED FOR UNKNOWN INDICATION
     Route: 051
     Dates: start: 2017
  6. FURANYL FENTANYL [Suspect]
     Active Substance: FURANYLFENTANYL
     Dates: start: 2017
  7. OXYCODONE [Suspect]
     Active Substance: OXYCODONE
     Route: 051
     Dates: start: 2017
  8. HEROIN [Suspect]
     Active Substance: DIAMORPHINE
     Dates: start: 2017

REACTIONS (2)
  - Incorrect route of product administration [Unknown]
  - Drug abuse [Fatal]

NARRATIVE: CASE EVENT DATE: 2017
